FAERS Safety Report 7331194-6 (Version None)
Quarter: 2011Q1

REPORT INFORMATION
  Report Type: 
  Country: None (occurrence: None)
  Receive Date: 20110304
  Receipt Date: 20110228
  Transmission Date: 20110831
  Serious: Yes (Other)
  Sender: FDA-Public Use
  Company Number: ES-PFIZER INC-2011042713

PATIENT
  Age: 59 Year
  Sex: Male

DRUGS (1)
  1. VFEND [Suspect]
     Indication: BRONCHITIS FUNGAL
     Dosage: 200 MG, 2X/DAY
     Route: 048
     Dates: start: 20101201, end: 20101215

REACTIONS (1)
  - HEPATOTOXICITY [None]
